FAERS Safety Report 20064146 (Version 2)
Quarter: 2021Q4

REPORT INFORMATION
  Report Type: Report from Study
  Country: JP (occurrence: JP)
  Receive Date: 20211112
  Receipt Date: 20211116
  Transmission Date: 20220303
  Serious: Yes (Other)
  Sender: FDA-Public Use
  Company Number: JP-GLAXOSMITHKLINE-JP2021JPN230284

PATIENT

DRUGS (3)
  1. RANITIDINE HYDROCHLORIDE [Suspect]
     Active Substance: RANITIDINE HYDROCHLORIDE
     Dosage: 150 MG, BID
     Route: 048
  2. LOXOPROFEN SODIUM [Concomitant]
     Active Substance: LOXOPROFEN SODIUM
     Dosage: UNK
     Route: 048
  3. RABEPRAZOLE SODIUM TABLET [Concomitant]
     Dosage: 10 MG, QD

REACTIONS (5)
  - Dementia [Unknown]
  - Delirium [Unknown]
  - Cognitive disorder [Recovering/Resolving]
  - Violence-related symptom [Recovering/Resolving]
  - Refusal of treatment by patient [Recovering/Resolving]
